FAERS Safety Report 9452250 (Version 1)
Quarter: 2013Q3

REPORT INFORMATION
  Report Type: Other
  Country: DE (occurrence: DE)
  Receive Date: 20130812
  Receipt Date: 20130812
  Transmission Date: 20140515
  Serious: Yes (Other)
  Sender: FDA-Public Use
  Company Number: DE-BRISTOL-MYERS SQUIBB COMPANY-19150408

PATIENT
  Age: 65 Year
  Sex: Male

DRUGS (3)
  1. DASATINIB [Suspect]
  2. NILOTINIB [Suspect]
  3. IMATINIB MESILATE [Suspect]
     Dosage: DOSE INCREASED TO 800MG.
     Dates: start: 200008

REACTIONS (1)
  - Epithelioid sarcoma [Unknown]
